FAERS Safety Report 18765316 (Version 1)
Quarter: 2021Q1

REPORT INFORMATION
  Report Type: Spontaneous
  Country: US (occurrence: US)
  Receive Date: 20210121
  Receipt Date: 20210121
  Transmission Date: 20210419
  Serious: Yes (Other)
  Sender: FDA-Public Use
  Company Number: US-DRREDDYS-USA/USA/21/0131010

PATIENT
  Age: 19 Year
  Sex: Male

DRUGS (1)
  1. ZENATANE [Suspect]
     Active Substance: ISOTRETINOIN
     Indication: PRODUCT USED FOR UNKNOWN INDICATION
     Dosage: RMA ISSUE DATE: 12/3/2020 2:24:04 PM, 55111013781 10/1/2020 11:29:04 AM
     Route: 048
     Dates: end: 20201203

REACTIONS (1)
  - Psychotic disorder [Unknown]
